FAERS Safety Report 23423647 (Version 4)
Quarter: 2025Q1

REPORT INFORMATION
  Report Type: Spontaneous
  Country: JP (occurrence: JP)
  Receive Date: 20240119
  Receipt Date: 20250128
  Transmission Date: 20250408
  Serious: Yes (Other)
  Sender: LUNDBECK
  Company Number: JP-SA-2024SA015053

PATIENT

DRUGS (26)
  1. SABRIL [Suspect]
     Active Substance: VIGABATRIN
     Indication: Product used for unknown indication
     Route: 048
     Dates: start: 20211115, end: 2021
  2. SABRIL [Suspect]
     Active Substance: VIGABATRIN
     Dosage: 750 MG, BID
     Route: 048
     Dates: start: 20211202, end: 20241014
  3. SABRIL [Suspect]
     Active Substance: VIGABATRIN
     Dosage: 850 MG, BID
     Route: 048
     Dates: start: 20241015
  4. EVEROLIMUS [Concomitant]
     Active Substance: EVEROLIMUS
     Indication: Product used for unknown indication
     Route: 048
     Dates: start: 20220307, end: 20231120
  5. DIAZEPAM [Concomitant]
     Active Substance: DIAZEPAM
     Indication: Product used for unknown indication
  6. DIAZEPAM [Concomitant]
     Active Substance: DIAZEPAM
  7. VALPROATE SODIUM [Concomitant]
     Active Substance: VALPROATE SODIUM
     Indication: Product used for unknown indication
     Route: 048
     Dates: start: 20220926, end: 20221225
  8. VALPROATE SODIUM [Concomitant]
     Active Substance: VALPROATE SODIUM
     Route: 048
     Dates: start: 20221226, end: 20230702
  9. VALPROATE SODIUM [Concomitant]
     Active Substance: VALPROATE SODIUM
     Route: 048
     Dates: start: 20230703, end: 20240707
  10. VALPROATE SODIUM [Concomitant]
     Active Substance: VALPROATE SODIUM
     Route: 048
     Dates: start: 20240708
  11. CHLORAL HYDRATE [Concomitant]
     Active Substance: CHLORAL HYDRATE
     Indication: Product used for unknown indication
     Route: 050
     Dates: start: 20230827
  12. MIDAZOLAM HYDROCHLORIDE [Concomitant]
     Active Substance: MIDAZOLAM HYDROCHLORIDE
     Indication: Product used for unknown indication
     Route: 048
     Dates: start: 20230818, end: 20231120
  13. LAMOTRIGINE [Concomitant]
     Active Substance: LAMOTRIGINE
     Indication: Product used for unknown indication
     Route: 048
     Dates: start: 20230712, end: 20230723
  14. LAMOTRIGINE [Concomitant]
     Active Substance: LAMOTRIGINE
     Route: 048
     Dates: start: 20240101, end: 20240114
  15. LAMOTRIGINE [Concomitant]
     Active Substance: LAMOTRIGINE
     Route: 048
     Dates: start: 20240115, end: 20240125
  16. LAMOTRIGINE [Concomitant]
     Active Substance: LAMOTRIGINE
     Route: 048
     Dates: start: 20240126, end: 20240208
  17. LAMOTRIGINE [Concomitant]
     Active Substance: LAMOTRIGINE
     Route: 048
     Dates: start: 20240209, end: 20240222
  18. LAMOTRIGINE [Concomitant]
     Active Substance: LAMOTRIGINE
     Route: 048
     Dates: start: 20240223
  19. LAMOTRIGINE [Concomitant]
     Active Substance: LAMOTRIGINE
     Route: 048
     Dates: start: 20230724, end: 20230817
  20. LAMOTRIGINE [Concomitant]
     Active Substance: LAMOTRIGINE
     Route: 048
     Dates: start: 20230818, end: 20230827
  21. LAMOTRIGINE [Concomitant]
     Active Substance: LAMOTRIGINE
     Route: 048
     Dates: start: 20230828, end: 20230910
  22. LAMOTRIGINE [Concomitant]
     Active Substance: LAMOTRIGINE
     Route: 048
     Dates: start: 20230911, end: 20231001
  23. LAMOTRIGINE [Concomitant]
     Active Substance: LAMOTRIGINE
     Route: 048
     Dates: start: 20231002, end: 20231119
  24. LAMOTRIGINE [Concomitant]
     Active Substance: LAMOTRIGINE
     Route: 048
     Dates: start: 20231120, end: 20231203
  25. LAMOTRIGINE [Concomitant]
     Active Substance: LAMOTRIGINE
     Route: 048
     Dates: start: 20231204, end: 20231217
  26. LAMOTRIGINE [Concomitant]
     Active Substance: LAMOTRIGINE
     Route: 048
     Dates: start: 20231218, end: 20231231

REACTIONS (3)
  - Retinal degeneration [Not Recovered/Not Resolved]
  - Hypermetropia [Not Recovered/Not Resolved]
  - Refractive amblyopia [Not Recovered/Not Resolved]

NARRATIVE: CASE EVENT DATE: 20220913
